FAERS Safety Report 6400391-6 (Version None)
Quarter: 2009Q4

REPORT INFORMATION
  Report Type: 
  Country: None (occurrence: None)
  Receive Date: 20091014
  Receipt Date: 20091002
  Transmission Date: 20100525
  Serious: Yes (Hospitalization)
  Sender: FDA-Public Use
  Company Number: DE-ELI_LILLY_AND_COMPANY-DE200908004863

PATIENT
  Sex: Female
  Weight: 40 kg

DRUGS (11)
  1. PEMETREXED [Suspect]
     Indication: NON-SMALL CELL LUNG CANCER
     Dosage: 500 MG/M2, ON D1 EVERY 21 DAYS
     Route: 042
     Dates: start: 20090811, end: 20090820
  2. CISPLATIN [Suspect]
     Indication: NON-SMALL CELL LUNG CANCER
     Dosage: 75 MG/M2, ON D1 EVERY 21 DAYS
     Route: 042
     Dates: start: 20090811, end: 20090820
  3. FOLIC ACID [Concomitant]
     Indication: PROPHYLAXIS
     Dates: start: 20090804
  4. VIT B12 [Concomitant]
     Indication: PROPHYLAXIS
     Dates: start: 20090804, end: 20090804
  5. DEXAMETHASONE 0.5MG TAB [Concomitant]
     Indication: PROPHYLAXIS
     Dates: start: 20090810, end: 20090816
  6. TILIDIN [Concomitant]
     Dates: start: 20090803
  7. MOVICOL /01053601/ [Concomitant]
     Dates: start: 20090811
  8. PREDNISOLONE [Concomitant]
     Dates: start: 20090801
  9. METOCLOPRAMIDE [Concomitant]
     Dates: start: 20090801
  10. PARACETAMOL [Concomitant]
     Dates: start: 20090727
  11. OXAZEPAM [Concomitant]
     Dates: start: 20090801

REACTIONS (2)
  - GENERAL PHYSICAL HEALTH DETERIORATION [None]
  - PNEUMONIA [None]
